FAERS Safety Report 6233527-0 (Version None)
Quarter: 2009Q2

REPORT INFORMATION
  Report Type: 
  Country: None (occurrence: None)
  Receive Date: 20090617
  Receipt Date: 20090610
  Transmission Date: 20091009
  Serious: Yes (Death)
  Sender: FDA-Public Use
  Company Number: DZ-SANOFI-SYNTHELABO-A01200906030

PATIENT
  Age: 84 Year
  Sex: Male

DRUGS (1)
  1. PLAVIX [Suspect]
     Indication: ACUTE MYOCARDIAL INFARCTION
     Route: 048
     Dates: start: 20090513, end: 20090513

REACTIONS (3)
  - DEATH [None]
  - PETECHIAE [None]
  - PURPURA [None]
